FAERS Safety Report 12190512 (Version 1)
Quarter: 2016Q1

REPORT INFORMATION
  Report Type: Spontaneous
  Country: US (occurrence: US)
  Receive Date: 20160318
  Receipt Date: 20160318
  Transmission Date: 20160526
  Serious: No
  Sender: FDA-Public Use
  Company Number: US-ZYDUS-008593

PATIENT
  Age: 26 Year
  Sex: Female

DRUGS (2)
  1. LAMOTRIGINE. [Suspect]
     Active Substance: LAMOTRIGINE
     Indication: BIPOLAR DISORDER
     Dosage: 300 MG NIGHTLY
     Route: 048
     Dates: start: 2013
  2. QUETIAPINE [Concomitant]
     Active Substance: QUETIAPINE
     Dosage: 600 MG NIGHTLY
     Route: 048

REACTIONS (1)
  - Drug screen false positive [Not Recovered/Not Resolved]
